FAERS Safety Report 9017587 (Version 1)
Quarter: 2013Q1

REPORT INFORMATION
  Report Type: Report from Study
  Country: US (occurrence: US)
  Receive Date: 20130117
  Receipt Date: 20130117
  Transmission Date: 20140127
  Serious: Yes (Death, Other)
  Sender: FDA-Public Use
  Company Number: US-BAYER-2013-004881

PATIENT
  Age: 57 Year
  Sex: Female

DRUGS (10)
  1. DIPHENHYDRAMINE [Suspect]
  2. VERAPAMIL [Suspect]
  3. KEPPRA [Suspect]
  4. ETHANOL [Suspect]
  5. CITALOPRAM [Suspect]
  6. LAMOTRIGINE [Suspect]
  7. MEMANTINE [Suspect]
  8. QUETIAPINE [Suspect]
  9. TRAZODONE [Suspect]
  10. PIPERAZINE [Suspect]

REACTIONS (2)
  - Toxicity to various agents [Fatal]
  - Intentional overdose [None]
